FAERS Safety Report 5249510-8 (Version None)
Quarter: 2007Q1

REPORT INFORMATION
  Report Type: 
  Country: None (occurrence: None)
  Receive Date: 20070223
  Receipt Date: 20070214
  Transmission Date: 20070707
  Serious: Yes (Death, Other)
  Sender: FDA-Public Use
  Company Number: 056-C5013-07010817

PATIENT
  Age: 71 Year
  Sex: Male
  Weight: 52 kg

DRUGS (9)
  1. CC-5013 (LENALIDOMIDE) (CAPSULES) [Suspect]
     Indication: MULTIPLE MYELOMA
     Dosage: 25 MG, 1/DAY 21 DAYS/MONTH, ORAL
     Route: 048
     Dates: start: 20061114, end: 20061121
  2. DECTANCYL (DEXAMETHASONE ACETATE) (TABLETS) [Suspect]
     Indication: MULTIPLE MYELOMA
     Dosage: 40 MG, ORAL
     Route: 048
     Dates: start: 20061101, end: 20061101
  3. TARDYFERON BQ (FERROUS SULFATE) [Concomitant]
  4. MORPHINE SULFATE [Concomitant]
  5. OMIX (TAMSULOSIN HYDROCHLORIDE) [Concomitant]
  6. VALACYCLOVIR HCL [Concomitant]
  7. LYRICA [Concomitant]
  8. IMMUNE GLOBULIN (HUMAN) [Concomitant]
  9. ARANESP [Concomitant]

REACTIONS (18)
  - ANAEMIA [None]
  - BLOOD CALCIUM DECREASED [None]
  - CACHEXIA [None]
  - COMA [None]
  - DEHYDRATION [None]
  - DIARRHOEA [None]
  - FATIGUE [None]
  - GENERAL PHYSICAL HEALTH DETERIORATION [None]
  - HAEMOGLOBIN DECREASED [None]
  - LUNG DISORDER [None]
  - NEUTROPENIA [None]
  - OEDEMA PERIPHERAL [None]
  - PAIN [None]
  - PLATELET COUNT DECREASED [None]
  - RED BLOOD CELL COUNT DECREASED [None]
  - SHOCK [None]
  - SINUS TACHYCARDIA [None]
  - VOMITING [None]
